FAERS Safety Report 8317591-0 (Version None)
Quarter: 2012Q2

REPORT INFORMATION
  Report Type: 
  Country: None (occurrence: None)
  Receive Date: 20120427
  Receipt Date: 20110328
  Transmission Date: 20120825
  Serious: No
  Sender: FDA-Public Use
  Company Number: US-GLAXOSMITHKLINE-A0920302A

PATIENT
  Age: 37 Year
  Sex: Female

DRUGS (2)
  1. ZOFRAN [Suspect]
     Indication: PROPHYLAXIS OF NAUSEA AND VOMITING
     Dosage: 8MG AS REQUIRED
     Route: 048
  2. ZOFRAN [Suspect]
     Dosage: 8MG AS REQUIRED
     Route: 048

REACTIONS (3)
  - INSOMNIA [None]
  - MATERNAL EXPOSURE DURING PREGNANCY [None]
  - PALPITATIONS [None]
